FAERS Safety Report 7271491-6 (Version None)
Quarter: 2011Q1

REPORT INFORMATION
  Report Type: 
  Country: None (occurrence: None)
  Receive Date: 20110128
  Receipt Date: 20110128
  Transmission Date: 20110831
  Serious: Yes (Other)
  Sender: FDA-Public Use
  Company Number: None

PATIENT
  Sex: Female
  Weight: 124.2856 kg

DRUGS (1)
  1. ATENOLOL [Suspect]
     Indication: HYPERTENSION
     Dosage: 50MG DAILY ORAL (PRIOR TO 2008)
     Route: 048

REACTIONS (4)
  - DYSPNOEA [None]
  - PRODUCT SUBSTITUTION ISSUE [None]
  - DIZZINESS [None]
  - FATIGUE [None]
